FAERS Safety Report 4685085-X (Version None)
Quarter: 2005Q2

REPORT INFORMATION
  Report Type: 
  Country: None (occurrence: None)
  Receive Date: 20050531
  Receipt Date: 20050301
  Transmission Date: 20051028
  Serious: Yes (Life-Threatening, Hospitalization, Other)
  Sender: FDA-Public Use
  Company Number: WAES 0503USA00232

PATIENT
  Age: 57 Year
  Sex: Male
  Weight: 65.7716 kg

DRUGS (3)
  1. ZETIA [Suspect]
     Indication: HYPERCHOLESTEROLAEMIA
     Dosage: 10 MG/DAILY/PO
     Route: 048
     Dates: start: 20040102, end: 20050205
  2. NEXIUM [Concomitant]
  3. ASPIRIN [Concomitant]

REACTIONS (1)
  - PANCREATITIS ACUTE [None]
